FAERS Safety Report 13907166 (Version 1)
Quarter: 2017Q3

REPORT INFORMATION
  Report Type: Spontaneous
  Country: CA (occurrence: CA)
  Receive Date: 20170825
  Receipt Date: 20170825
  Transmission Date: 20171127
  Serious: Yes (Other)
  Sender: FDA-Public Use
  Company Number: CA-BAUSCH-BL-2017-025405

PATIENT
  Sex: Male

DRUGS (2)
  1. TEVA-DILTIAZEM HCL ER [Suspect]
     Active Substance: DILTIAZEM HYDROCHLORIDE
     Indication: ARRHYTHMIA
  2. TEVA-DILTIAZEM HCL ER [Suspect]
     Active Substance: DILTIAZEM HYDROCHLORIDE
     Indication: HYPERTENSION
     Route: 048
     Dates: start: 2007

REACTIONS (4)
  - Hypertensive crisis [Recovered/Resolved]
  - Product dosage form issue [Unknown]
  - Product physical issue [Unknown]
  - Heart rate abnormal [None]

NARRATIVE: CASE EVENT DATE: 2016
